FAERS Safety Report 17977639 (Version 1)
Quarter: 2020Q3

REPORT INFORMATION
  Report Type: Report from Study
  Country: US (occurrence: US)
  Receive Date: 20200703
  Receipt Date: 20200703
  Transmission Date: 20201103
  Serious: Yes (Death, Other)
  Sender: FDA-Public Use
  Company Number: US-ROCHE-2623237

PATIENT
  Sex: Male
  Weight: 111.23 kg

DRUGS (1)
  1. LUCENTIS [Suspect]
     Active Substance: RANIBIZUMAB
     Indication: NEOVASCULAR AGE-RELATED MACULAR DEGENERATION
     Dosage: ONGOING: NO
     Route: 050

REACTIONS (6)
  - Intentional product misuse [Unknown]
  - Anxiety [Not Recovered/Not Resolved]
  - Off label use [Unknown]
  - Multiple organ dysfunction syndrome [Unknown]
  - Death [Fatal]
  - Injection site pain [Unknown]
